FAERS Safety Report 12310524 (Version 2)
Quarter: 2016Q2

REPORT INFORMATION
  Report Type: Spontaneous
  Country: JP (occurrence: JP)
  Receive Date: 20160427
  Receipt Date: 20160520
  Transmission Date: 20160815
  Serious: Yes (Hospitalization)
  Sender: FDA-Public Use
  Company Number: JP-ELI_LILLY_AND_COMPANY-JP201604009279

PATIENT
  Age: 5 Year
  Sex: Male
  Weight: 15 kg

DRUGS (8)
  1. STRATTERA [Suspect]
     Active Substance: ATOMOXETINE HYDROCHLORIDE
     Dosage: 2.3 ML, BID
     Route: 048
     Dates: start: 20150831, end: 20151019
  2. STRATTERA [Suspect]
     Active Substance: ATOMOXETINE HYDROCHLORIDE
     Indication: ATTENTION DEFICIT/HYPERACTIVITY DISORDER
     Dosage: 0.9 ML, BID
     Route: 048
     Dates: start: 20150630, end: 20150706
  3. STRATTERA [Suspect]
     Active Substance: ATOMOXETINE HYDROCHLORIDE
     Dosage: 2.2 ML, BID
     Route: 048
     Dates: start: 20150714, end: 20150825
  4. STRATTERA [Suspect]
     Active Substance: ATOMOXETINE HYDROCHLORIDE
     Dosage: 2.4 ML, BID
     Route: 048
     Dates: start: 20151020
  5. RISPERDAL [Concomitant]
     Active Substance: RISPERIDONE
     Dosage: 0.75 MG, QD
     Route: 048
     Dates: start: 20150825, end: 20151019
  6. STRATTERA [Suspect]
     Active Substance: ATOMOXETINE HYDROCHLORIDE
     Dosage: 1.5 ML, BID
     Route: 048
     Dates: start: 20150707, end: 20150713
  7. RISPERDAL [Concomitant]
     Active Substance: RISPERIDONE
     Dosage: 0.5 MG, BID
     Route: 048
     Dates: start: 20151020
  8. RISPERDAL [Concomitant]
     Active Substance: RISPERIDONE
     Indication: ATTENTION DEFICIT/HYPERACTIVITY DISORDER
     Dosage: 0.5 MG, QD
     Route: 048
     Dates: start: 20150729, end: 20150824

REACTIONS (1)
  - Acute myeloid leukaemia [Not Recovered/Not Resolved]

NARRATIVE: CASE EVENT DATE: 20160405
